FAERS Safety Report 8869818 (Version 1)
Quarter: 2012Q4

REPORT INFORMATION
  Report Type: 
  Country: CN (occurrence: CN)
  Receive Date: 20121028
  Receipt Date: 20121028
  Transmission Date: 20130627
  Serious: Yes (Other)
  Sender: FDA-Public Use
  Company Number: CN-JNJFOC-20121011568

PATIENT

DRUGS (2)
  1. REMICADE [Suspect]
     Indication: ANKYLOSING SPONDYLITIS
     Dosage: at week 0, 2 and at 6
     Route: 042
  2. METHOTREXATE [Concomitant]
     Dosage: 10 to 15 mg per time
     Route: 048

REACTIONS (1)
  - Skin ulcer [Unknown]
